FAERS Safety Report 20567805 (Version 1)
Quarter: 2022Q1

REPORT INFORMATION
  Report Type: Spontaneous
  Country: US (occurrence: None)
  Receive Date: 20220308
  Receipt Date: 20220308
  Transmission Date: 20220423
  Serious: Yes (Death)
  Sender: FDA-Public Use
  Company Number: None

PATIENT
  Age: 46 Year
  Sex: Male
  Weight: 219.1 kg

DRUGS (1)
  1. REGEN-COV [Suspect]
     Active Substance: CASIRIVIMAB\IMDEVIMAB
     Indication: COVID-19
     Dates: start: 20211230, end: 20211230

REACTIONS (4)
  - Contraindicated product administered [None]
  - Infusion related hypersensitivity reaction [None]
  - General physical health deterioration [None]
  - Cardiopulmonary failure [None]

NARRATIVE: CASE EVENT DATE: 20211230
